FAERS Safety Report 7503523-1 (Version None)
Quarter: 2011Q2

REPORT INFORMATION
  Report Type: 
  Country: None (occurrence: None)
  Receive Date: 20110525
  Receipt Date: 20110519
  Transmission Date: 20111010
  Serious: Yes (Hospitalization)
  Sender: FDA-Public Use
  Company Number: FR-ROCHE-778568

PATIENT
  Sex: Female
  Weight: 65 kg

DRUGS (4)
  1. FOLFOX REGIMEN [Concomitant]
     Indication: COLORECTAL CANCER
  2. ACTIQ [Concomitant]
     Indication: PAIN
     Route: 048
  3. AVASTIN [Suspect]
     Indication: COLORECTAL CANCER
     Route: 042
     Dates: start: 20110117, end: 20110418
  4. INNOHEP [Interacting]
     Indication: PULMONARY EMBOLISM
     Dosage: DOSE: 0.6
     Route: 058
     Dates: start: 20110420, end: 20110509

REACTIONS (2)
  - DRUG INTERACTION [None]
  - HAEMATOMA [None]
